FAERS Safety Report 9214702 (Version 3)
Quarter: 2013Q2

REPORT INFORMATION
  Report Type: Spontaneous
  Country: US (occurrence: US)
  Receive Date: 20130405
  Receipt Date: 20130429
  Transmission Date: 20140414
  Serious: Yes (Hospitalization)
  Sender: FDA-Public Use
  Company Number: US-SANOFI-AVENTIS-2013SA035105

PATIENT
  Age: 40 Year
  Sex: Female
  Weight: 133 kg

DRUGS (19)
  1. AUBAGIO [Suspect]
     Indication: MULTIPLE SCLEROSIS
     Route: 048
     Dates: start: 20130315, end: 20130328
  2. TIZANIDINE [Concomitant]
  3. RELPAX [Concomitant]
  4. VITAMIN B12 [Concomitant]
  5. GABAPENTIN [Concomitant]
  6. PREMARIN TABLET [Concomitant]
  7. PREDNISONE [Concomitant]
     Dosage: TAKE 1 TABLET THE DAY BEFORE, THE DAY OF, AND THE DAY AFTER OF INFUSION
  8. DICYCLOMINE [Concomitant]
  9. ZOLPIDEM [Concomitant]
  10. LORTAB [Concomitant]
  11. RANITIDINE [Concomitant]
  12. VITAMIN D [Concomitant]
  13. NEXIUM [Concomitant]
  14. MULTIVITAMINS [Concomitant]
  15. CALCIUM [Concomitant]
  16. FENTANYL [Concomitant]
     Dosage: APPLY 1 PATCH EVERY 72 HOURS
  17. FENTANYL [Concomitant]
     Dosage: APPLY 1 PATCH EVERY 72 HOURS
  18. ACETAMINOPHEN [Concomitant]
     Dosage: TAKE 2 TABLETS 650 MG BY MOUTH PRIOR TO IVIG INFUSION)
  19. DIPHENHYDRAMINE [Concomitant]
     Dosage: TAKE 2 TABLETS 50MG BY MOUTH PRIOR TO IVIG INFUSION

REACTIONS (8)
  - Balance disorder [Not Recovered/Not Resolved]
  - Nausea [Not Recovered/Not Resolved]
  - Diarrhoea [Not Recovered/Not Resolved]
  - Dysarthria [Unknown]
  - Blood pressure increased [Unknown]
  - Dizziness [Unknown]
  - Blood glucose increased [Unknown]
  - Vision blurred [Unknown]
